FAERS Safety Report 25474467 (Version 1)
Quarter: 2025Q2

REPORT INFORMATION
  Report Type: Spontaneous
  Country: US (occurrence: US)
  Receive Date: 20250624
  Receipt Date: 20250624
  Transmission Date: 20250716
  Serious: Yes (Death, Other)
  Sender: AMGEN
  Company Number: US-AMGEN-USASP2025119674

PATIENT

DRUGS (2)
  1. RITUXIMAB [Suspect]
     Active Substance: RITUXIMAB
     Indication: Burkitt^s lymphoma
     Route: 065
  2. GEMCITABINE [Concomitant]
     Active Substance: GEMCITABINE

REACTIONS (13)
  - Immune effector cell-associated neurotoxicity syndrome [Fatal]
  - Septic shock [Fatal]
  - Burkitt^s lymphoma recurrent [Fatal]
  - Ill-defined disorder [Fatal]
  - Infection [Fatal]
  - Burkitt^s lymphoma refractory [Unknown]
  - Febrile neutropenia [Unknown]
  - Thrombocytopenia [Unknown]
  - Cytokine release syndrome [Unknown]
  - Neutropenia [Unknown]
  - Therapy partial responder [Unknown]
  - Haemorrhage [Unknown]
  - Anaemia [Unknown]
